FAERS Safety Report 20943157 (Version 1)
Quarter: 2022Q2

REPORT INFORMATION
  Report Type: Spontaneous
  Country: BR (occurrence: None)
  Receive Date: 20220610
  Receipt Date: 20220610
  Transmission Date: 20220721
  Serious: Yes (Hospitalization)
  Sender: FDA-Public Use
  Company Number: BR-ROCHE-3111506

PATIENT
  Age: 39 Year
  Sex: Female
  Weight: 83.6 kg

DRUGS (1)
  1. MABTHERA [Suspect]
     Active Substance: RITUXIMAB
     Indication: Systemic lupus erythematosus
     Dosage: INFUSION INJECTABLE SOLUTION 50MG/ML?THERAPY INITIATED AT 10.30 AM AND FINISHED AT 13.00 PM
     Route: 042
     Dates: start: 20210604, end: 20210604

REACTIONS (1)
  - Pruritus [Recovered/Resolved]

NARRATIVE: CASE EVENT DATE: 20210604
